FAERS Safety Report 17561552 (Version 1)
Quarter: 2020Q1

REPORT INFORMATION
  Report Type: Spontaneous
  Country: US (occurrence: US)
  Receive Date: 20200319
  Receipt Date: 20200319
  Transmission Date: 20200409
  Serious: Yes (Hospitalization)
  Sender: FDA-Public Use
  Company Number: None

PATIENT
  Age: 76 Year
  Sex: Female
  Weight: 65.77 kg

DRUGS (3)
  1. JAKAFI [Concomitant]
     Active Substance: RUXOLITINIB
     Dates: start: 20190307
  2. JAKAFI [Suspect]
     Active Substance: RUXOLITINIB
     Route: 048
  3. JAKAFI [Concomitant]
     Active Substance: RUXOLITINIB
     Dates: start: 20190307

REACTIONS (3)
  - Pneumonia [None]
  - Herpes zoster [None]
  - Cardiac failure congestive [None]

NARRATIVE: CASE EVENT DATE: 20200224
